FAERS Safety Report 22166927 (Version 9)
Quarter: 2023Q4

REPORT INFORMATION
  Report Type: Spontaneous
  Country: CA (occurrence: CA)
  Receive Date: 20230403
  Receipt Date: 20231027
  Transmission Date: 20240109
  Serious: Yes (Other)
  Sender: FDA-Public Use
  Company Number: CA-PFIZER INC-202200839726

PATIENT
  Age: 82 Year
  Sex: Female

DRUGS (19)
  1. RUXIENCE [Suspect]
     Active Substance: RITUXIMAB-PVVR
     Indication: Rheumatoid arthritis
     Dosage: 1000 MG, DAY 1 AND DAY 15
     Route: 042
     Dates: start: 20211126, end: 20211210
  2. RUXIENCE [Suspect]
     Active Substance: RITUXIMAB-PVVR
     Dosage: 1000 MG, DAY 1 AND DAY 15
     Route: 042
     Dates: start: 20211210
  3. RUXIENCE [Suspect]
     Active Substance: RITUXIMAB-PVVR
     Dosage: 1000 MG , DAY 1 AND DAY 15
     Route: 042
     Dates: start: 20220610, end: 20220610
  4. RUXIENCE [Suspect]
     Active Substance: RITUXIMAB-PVVR
     Dosage: 1000 MG , DAY 1 AND DAY 15
     Route: 042
     Dates: start: 20220610, end: 20220624
  5. RUXIENCE [Suspect]
     Active Substance: RITUXIMAB-PVVR
     Dosage: 1000 MG, DAY 1 AND DAY 15
     Route: 042
     Dates: start: 20220624
  6. RUXIENCE [Suspect]
     Active Substance: RITUXIMAB-PVVR
     Dosage: 1000 MG, DAY 1 AND DAY 15
     Route: 042
     Dates: start: 20221205
  7. RUXIENCE [Suspect]
     Active Substance: RITUXIMAB-PVVR
     Dosage: 1000 MG, DAY 1 AND DAY 15
     Route: 042
     Dates: start: 20221205, end: 20221220
  8. RUXIENCE [Suspect]
     Active Substance: RITUXIMAB-PVVR
     Dosage: 1000 MG, DAY 1 AND DAY 15
     Route: 042
     Dates: start: 20221220
  9. RUXIENCE [Suspect]
     Active Substance: RITUXIMAB-PVVR
     Dosage: 1000 MG, (DAY 1 AND DAY 15)
     Route: 042
     Dates: start: 20230711, end: 20230725
  10. RUXIENCE [Suspect]
     Active Substance: RITUXIMAB-PVVR
     Dosage: 1000 MG, WEEK 1 RETREATMENT (DAY 1 AND DAY 15)
     Route: 042
     Dates: start: 20230711
  11. RUXIENCE [Suspect]
     Active Substance: RITUXIMAB-PVVR
     Dosage: 1000 MG AFTER 2 WEEKS (DAY 1 AND DAY 15)
     Route: 042
     Dates: start: 20230725
  12. ACETAMINOPHEN [Concomitant]
     Active Substance: ACETAMINOPHEN
     Indication: Premedication
     Dosage: 650 MG
     Route: 048
     Dates: start: 20221205, end: 20221205
  13. CYCLOSPORINE [Concomitant]
     Active Substance: CYCLOSPORINE
     Dosage: 100 MG, DAILY
     Route: 048
  14. DIPHENHYDRAMINE [Concomitant]
     Active Substance: DIPHENHYDRAMINE
     Indication: Premedication
     Dosage: 50 MG
     Route: 048
     Dates: start: 20221205, end: 20221205
  15. HYDROXYCHLOROQUINE [Concomitant]
     Active Substance: HYDROXYCHLOROQUINE
     Dosage: 200 MG, DAILY
     Route: 048
  16. LOSARTAN [Concomitant]
     Active Substance: LOSARTAN
     Dosage: UNK
  17. METHOTREXATE [Concomitant]
     Active Substance: METHOTREXATE
     Indication: Rheumatoid arthritis
     Dosage: 15 MG, WEEKLY
     Route: 048
  18. PREDNISONE [Concomitant]
     Active Substance: PREDNISONE
     Dosage: 5 MG, DAILY
  19. PLAQUENIL [Concomitant]
     Active Substance: HYDROXYCHLOROQUINE SULFATE
     Dosage: UNK

REACTIONS (18)
  - Urinary retention [Unknown]
  - Syncope [Unknown]
  - Herpes zoster [Recovered/Resolved]
  - C-reactive protein increased [Not Recovered/Not Resolved]
  - Musculoskeletal stiffness [Unknown]
  - Cystitis [Unknown]
  - Peripheral swelling [Recovered/Resolved]
  - Fluid retention [Unknown]
  - Blood pressure systolic increased [Unknown]
  - Pain [Unknown]
  - Condition aggravated [Not Recovered/Not Resolved]
  - Contusion [Unknown]
  - Therapeutic product effect incomplete [Unknown]
  - Therapeutic response shortened [Unknown]
  - Off label use [Unknown]
  - Product use issue [Unknown]
  - Off label use [Unknown]
  - Intentional product use issue [Unknown]

NARRATIVE: CASE EVENT DATE: 20220101
